FAERS Safety Report 9511092 (Version 1)
Quarter: 2013Q1

REPORT INFORMATION
  Report Type: Spontaneous
  Country: US (occurrence: None)
  Receive Date: 20130305
  Receipt Date: 20130305
  Transmission Date: 20140127
  Serious: Yes (Other)
  Sender: FDA-Public Use
  Company Number: 163-21880-12071561

PATIENT
  Age: 76 Year
  Sex: Male
  Weight: 97.52 kg

DRUGS (20)
  1. REVLIMID (LENALIDOMIDE) (CAPSULES) [Suspect]
     Indication: PLASMA CELL MYELOMA
     Dosage: 10 MG, 21 IN 21 D, PO
     Route: 048
     Dates: start: 20120404
  2. ALBUTEROL (SALBUTAMOL) (UNKNOWN) [Concomitant]
  3. FISH OIL (FISH OIL) (UNKNOWN) [Concomitant]
  4. KLOR-CON (POTASSIUM CHLORIDE) (UNKNOWN) [Concomitant]
  5. LAMICTAL (LAMOTRIGINE) (UNKNOWN) [Concomitant]
  6. LASIX (FUROSEMIDE) (UNKNOWN) [Concomitant]
  7. LEVOTHROXINE (LEVOTHYROXINE) (UNKNOWN) [Concomitant]
  8. MULTIVITAMINS (MULTIVITAMINS) (UNKNOWN) [Concomitant]
  9. NADOLOL (NADOLOL) (UNKNOWN) [Concomitant]
  10. NAMENDA (MEMANTINE HYDROCHLORIDE) (UNKNOWN) [Concomitant]
  11. PRADAXA (DEBIGATRAN ETEXILATE MESILATE) (UNKNOWN) [Concomitant]
  12. PRILOSEC (OMEPRAZOLE) UNKNOWN) [Concomitant]
  13. SIMVASTATIN [Concomitant]
  14. SPIRIVA (TIOTROPIUM BROMIDE) (UNKNOWN) [Concomitant]
  15. SYMBICORT (SYMBICORT TURBUHALER ^DRACO^) (UNKNOWN) [Concomitant]
  16. ZOMETA (ZOLEDRONIC ACID) (UNKNOWN) [Concomitant]
  17. XANAX (ALPROZOLAM) (UNKNOWN) [Concomitant]
  18. PROMETHAZINE (PROMETHAZINE) (UNKNOWN) [Concomitant]
  19. RESTASIS (CICLOSPORIN) (UNKNOWN) [Concomitant]
  20. OMPERAZOLE (OMEPRAZOLE) (UNKNOWN) [Concomitant]

REACTIONS (2)
  - Nausea [None]
  - Pyrexia [None]
